FAERS Safety Report 5865154-9 (Version None)
Quarter: 2008Q3

REPORT INFORMATION
  Report Type: 
  Country: None (occurrence: None)
  Receive Date: 20080829
  Receipt Date: 20080825
  Transmission Date: 20090109
  Serious: Yes (Death)
  Sender: FDA-Public Use
  Company Number: A0745060A

PATIENT
  Age: 77 Year
  Sex: Female
  Weight: 88 kg

DRUGS (4)
  1. SERETIDE [Suspect]
     Indication: CHRONIC OBSTRUCTIVE PULMONARY DISEASE
     Dates: start: 20060801, end: 20080810
  2. SPIRIVA [Concomitant]
     Dates: start: 20070801, end: 20080801
  3. ENALAPRIL MALEATE [Concomitant]
     Dosage: 1TAB TWICE PER DAY
     Dates: start: 20030801, end: 20080801
  4. FUROSEMIDE [Concomitant]
     Dosage: 1TAB TWICE PER DAY
     Dates: start: 20030801, end: 20080810

REACTIONS (4)
  - CARDIAC FAILURE [None]
  - PNEUMONIA [None]
  - RENAL FAILURE [None]
  - RESPIRATORY FAILURE [None]
